FAERS Safety Report 19813318 (Version 1)
Quarter: 2021Q3

REPORT INFORMATION
  Report Type: Not Available
  Country: None (occurrence: None)
  Receive Date: 20210910
  Receipt Date: 20210910
  Transmission Date: 20211014
  Serious: Yes (Hospitalization)
  Sender: FDA-Public Use
  Company Number: US-AKORN-171072

PATIENT
  Age: 37 Year
  Sex: Male

DRUGS (1)
  1. LACTULOSE. [Suspect]
     Active Substance: LACTULOSE

REACTIONS (1)
  - Drug ineffective [Recovered/Resolved]
